FAERS Safety Report 15272506 (Version 3)
Quarter: 2018Q3

REPORT INFORMATION
  Report Type: Spontaneous
  Country: US (occurrence: US)
  Receive Date: 20180813
  Receipt Date: 20180927
  Transmission Date: 20181010
  Serious: Yes (Hospitalization)
  Sender: FDA-Public Use
  Company Number: US-VERTEX PHARMACEUTICALS-2018-005609

PATIENT
  Sex: Female
  Weight: 58 kg

DRUGS (43)
  1. ASMANEX [Concomitant]
     Active Substance: MOMETASONE FUROATE
     Dosage: 2 DOSAGE FORM, BID
     Route: 055
  2. FLONASE                            /00908302/ [Concomitant]
     Active Substance: MOMETASONE FUROATE
     Dosage: 1 DOSAGE FORM, QD
     Route: 045
  3. DOCUSATE PLUS SENNA [Concomitant]
     Active Substance: DOCUSATE SODIUM\SENNOSIDES A AND B
  4. PRILOSEC [Concomitant]
     Active Substance: OMEPRAZOLE MAGNESIUM
     Dosage: 40 MG, QD
     Route: 048
  5. BENTYL [Concomitant]
     Active Substance: DICYCLOMINE HYDROCHLORIDE
     Dosage: 1 DOSAGE FORM, BID
     Route: 048
  6. BIOTIN [Concomitant]
     Active Substance: BIOTIN
  7. CLONIDINE. [Concomitant]
     Active Substance: CLONIDINE
     Dosage: 1 DOSAGE FORM, QD
     Route: 048
  8. PULMOZYME [Concomitant]
     Active Substance: DORNASE ALFA
     Dosage: 2.5 MILLILITER, QD
     Route: 055
  9. PERTZYE [Concomitant]
     Active Substance: PANCRELIPASE AMYLASE\PANCRELIPASE LIPASE\PANCRELIPASE PROTEASE
     Route: 048
  10. URSODIOL. [Concomitant]
     Active Substance: URSODIOL
     Dosage: 1 DOSAGE FORM, BID
     Route: 048
  11. BUDESONIDE. [Concomitant]
     Active Substance: BUDESONIDE
  12. EXCEDRIN [Concomitant]
     Active Substance: ACETAMINOPHEN\ASPIRIN\CAFFEINE
     Indication: MIGRAINE
     Dosage: 1 DOSAGE FORM, PRN
     Route: 048
  13. REGLAN [Concomitant]
     Active Substance: METOCLOPRAMIDE HYDROCHLORIDE
     Dosage: 1 DOSAGE FORM, QID
     Route: 048
  14. ORKAMBI [Suspect]
     Active Substance: IVACAFTOR\LUMACAFTOR
     Indication: CYSTIC FIBROSIS
     Dosage: 2 DOSAGE FORM, BID
     Route: 048
     Dates: end: 2018
  15. VITAMIN D3 [Concomitant]
     Active Substance: CHOLECALCIFEROL
     Dosage: 1 DOSAGE FORM, QD
     Route: 048
  16. ALBUTEROL                          /00139501/ [Concomitant]
     Active Substance: ALBUTEROL
     Indication: DYSPNOEA
     Dosage: 3 MILLILITER, QID
     Route: 055
  17. VITAMIN E                          /00110501/ [Concomitant]
     Active Substance: TOCOPHEROL
     Dosage: 1 DOSAGE FORM, QD
     Route: 048
  18. DILAUDID [Concomitant]
     Active Substance: HYDROMORPHONE HYDROCHLORIDE
  19. INSULIN LISPRO [Concomitant]
     Active Substance: INSULIN LISPRO
     Dosage: UNK, PRN
     Route: 058
  20. IPRATROPIUM [Concomitant]
     Active Substance: IPRATROPIUM
     Dosage: 2.5 MILLILITER, Q4H
     Route: 055
  21. HYDROXYZINE HYDROCHLORIDE. [Concomitant]
     Active Substance: HYDROXYZINE HYDROCHLORIDE
     Dosage: 1 DOSAGE FORM, QD
     Route: 048
     Dates: end: 20180329
  22. LUBIPROSTONE [Concomitant]
     Active Substance: LUBIPROSTONE
     Dosage: 1 DOSAGE FORM, BID
     Route: 048
     Dates: end: 20180329
  23. ADEK [Concomitant]
     Route: 048
  24. FAMOTIDINE. [Concomitant]
     Active Substance: FAMOTIDINE
  25. SODIUM BICARBONATE. [Concomitant]
     Active Substance: SODIUM BICARBONATE
     Dosage: 650 MG, TID
     Route: 048
  26. TOBRAMYCIN. [Concomitant]
     Active Substance: TOBRAMYCIN
     Dosage: 5 MILLILITER, BID
     Route: 055
  27. VALIUM [Concomitant]
     Active Substance: DIAZEPAM
     Route: 048
  28. HYPERSAL [Concomitant]
     Dosage: 4 MILLILITER, BID
     Route: 055
  29. OMEPRAZOLE. [Concomitant]
     Active Substance: OMEPRAZOLE
     Dosage: 1 DOSAGE FORM, QD
     Route: 048
  30. SPIRONOLACTONE. [Concomitant]
     Active Substance: SPIRONOLACTONE
     Dosage: 2 DOSAGE FORM, QD
     Route: 048
  31. MIRALAX [Concomitant]
     Active Substance: POLYETHYLENE GLYCOL 3350
     Dosage: 17 GRAM, QD
     Route: 048
  32. SEROQUEL [Concomitant]
     Active Substance: QUETIAPINE FUMARATE
  33. VISTARIL                           /00058402/ [Concomitant]
     Active Substance: HYDROXYZINE HYDROCHLORIDE
     Dosage: 100 MG, PRN
     Route: 048
  34. LINZESS [Concomitant]
     Active Substance: LINACLOTIDE
     Dosage: 1 DOSAGE FORM, QD
     Route: 048
  35. GABAPENTIN. [Concomitant]
     Active Substance: GABAPENTIN
     Dosage: 2 DOSAGE FORM, BID
  36. COREG CR [Concomitant]
     Active Substance: CARVEDILOL PHOSPHATE
     Dosage: 1 DOSAGE FORM, QD
     Route: 048
  37. ALBUTEROL                          /00139501/ [Concomitant]
     Active Substance: ALBUTEROL
     Indication: ASTHMA
  38. ACETAMINOPHEN W/HYDROCODONE [Concomitant]
     Active Substance: ACETAMINOPHEN\HYDROCODONE
     Dosage: 1 DOSAGE FORM, PRN
     Route: 048
  39. TRAZODONE [Concomitant]
     Active Substance: TRAZODONE HYDROCHLORIDE
     Dosage: 0.5 MG, PRN
     Route: 048
  40. AFRIN [Concomitant]
     Active Substance: OXYMETAZOLINE
     Dosage: 2 DOSAGE FORM, PRN
     Route: 045
  41. FLAGYL [Concomitant]
     Active Substance: METRONIDAZOLE\METRONIDAZOLE HYDROCHLORIDE
     Route: 042
  42. AMBIEN [Concomitant]
     Active Substance: ZOLPIDEM TARTRATE
     Dosage: 1 DOSAGE FORM, QD
     Route: 048
  43. BETHKIS [Concomitant]
     Active Substance: TOBRAMYCIN

REACTIONS (4)
  - Respiratory failure [Unknown]
  - Treatment noncompliance [Recovering/Resolving]
  - Malnutrition [Not Recovered/Not Resolved]
  - Infective pulmonary exacerbation of cystic fibrosis [Unknown]

NARRATIVE: CASE EVENT DATE: 2017
